FAERS Safety Report 5921175-9 (Version None)
Quarter: 2008Q4

REPORT INFORMATION
  Report Type: 
  Country: None (occurrence: None)
  Receive Date: 20081016
  Receipt Date: 20081006
  Transmission Date: 20090506
  Serious: Yes (Death, Hospitalization)
  Sender: FDA-Public Use
  Company Number: US-AMGEN-QUU306495

PATIENT
  Sex: Male
  Weight: 94.4 kg

DRUGS (6)
  1. ENBREL [Suspect]
     Indication: RHEUMATOID ARTHRITIS
     Route: 058
     Dates: start: 20070820
  2. METHOTREXATE [Concomitant]
     Dates: start: 20060619
  3. AMBIEN [Concomitant]
  4. CALCIUM [Concomitant]
  5. PREDNISONE TAB [Concomitant]
  6. UNSPECIFIED VITAMINS [Concomitant]

REACTIONS (5)
  - CHEST PAIN [None]
  - MALAISE [None]
  - MYOCARDIAL INFARCTION [None]
  - SUDDEN DEATH [None]
  - THROMBOSIS [None]
